FAERS Safety Report 19389810 (Version 2)
Quarter: 2021Q2

REPORT INFORMATION
  Report Type: Spontaneous
  Country: US (occurrence: US)
  Receive Date: 20210608
  Receipt Date: 20210629
  Transmission Date: 20210717
  Serious: Yes (Other)
  Sender: FDA-Public Use
  Company Number: US-PFIZER INC-2021498450

PATIENT
  Age: 16 Year
  Sex: Female
  Weight: 55.78 kg

DRUGS (2)
  1. IBUPROFEN. [Concomitant]
     Active Substance: IBUPROFEN
     Indication: HEADACHE
     Dosage: 500 MG, TWICE DAILY
     Dates: start: 20210426
  2. GENOTROPIN [Suspect]
     Active Substance: SOMATROPIN
     Indication: TURNER^S SYNDROME
     Dosage: 3 MG, ONCE DAILY (AT NIGHT)
     Dates: start: 20210429, end: 20210502

REACTIONS (7)
  - Wrong technique in device usage process [Unknown]
  - Upper limb fracture [Unknown]
  - Urticaria [Unknown]
  - Device breakage [Unknown]
  - Patella fracture [Unknown]
  - Drug dose omission by device [Unknown]
  - Device leakage [Unknown]

NARRATIVE: CASE EVENT DATE: 20210503
